FAERS Safety Report 8525287-5 (Version None)
Quarter: 2012Q3

REPORT INFORMATION
  Report Type: 
  Country: None (occurrence: None)
  Receive Date: 20120720
  Receipt Date: 20120718
  Transmission Date: 20120928
  Serious: Yes (Hospitalization, Other)
  Sender: FDA-Public Use
  Company Number: PHHY2012DK049867

PATIENT
  Sex: Female

DRUGS (1)
  1. GILENYA [Suspect]
     Indication: MULTIPLE SCLEROSIS
     Dosage: 0.5 MG, QD
     Dates: start: 20120309, end: 20120510

REACTIONS (6)
  - ABSCESS [None]
  - MUSCULAR WEAKNESS [None]
  - APHASIA [None]
  - COGNITIVE DISORDER [None]
  - APPENDICITIS [None]
  - PERITONITIS [None]
